FAERS Safety Report 7691082-2 (Version None)
Quarter: 2011Q3

REPORT INFORMATION
  Report Type: 
  Country: None (occurrence: None)
  Receive Date: 20110818
  Receipt Date: 20110809
  Transmission Date: 20111222
  Serious: Yes (Hospitalization)
  Sender: FDA-Public Use
  Company Number: FR-ROCHE-795907

PATIENT
  Age: 43 Year
  Sex: Male

DRUGS (4)
  1. HALDOL [Suspect]
     Route: 048
     Dates: end: 20110710
  2. HALDOL [Suspect]
     Route: 048
     Dates: start: 20110713
  3. VALIUM [Suspect]
     Route: 048
     Dates: end: 20110710
  4. VALIUM [Suspect]
     Route: 048
     Dates: start: 20110713

REACTIONS (2)
  - TRANSAMINASES INCREASED [None]
  - BLOOD CREATINE PHOSPHOKINASE INCREASED [None]
